FAERS Safety Report 7332768-9 (Version None)
Quarter: 2011Q1

REPORT INFORMATION
  Report Type: 
  Country: None (occurrence: None)
  Receive Date: 20110304
  Receipt Date: 20091231
  Transmission Date: 20110831
  Serious: No
  Sender: FDA-Public Use
  Company Number: US-BAYER-201010246NA

PATIENT
  Sex: Female
  Weight: 54.422 kg

DRUGS (1)
  1. MIRENA [Suspect]
     Dosage: 20 ?G/D, CONT
     Route: 015
     Dates: end: 20090901

REACTIONS (3)
  - BREAST TENDERNESS [None]
  - GALACTORRHOEA [None]
  - AMENORRHOEA [None]
